FAERS Safety Report 8250511-6 (Version None)
Quarter: 2012Q2

REPORT INFORMATION
  Report Type: 
  Country: None (occurrence: None)
  Receive Date: 20120402
  Receipt Date: 20120402
  Transmission Date: 20120825
  Serious: Yes (Other)
  Sender: FDA-Public Use
  Company Number: None

PATIENT
  Sex: Female
  Weight: 65.77 kg

DRUGS (1)
  1. BONIVA [Suspect]
     Indication: OSTEOPOROSIS
     Dosage: 150 MG
     Route: 048
     Dates: start: 20110810, end: 20111210

REACTIONS (4)
  - CREPITATIONS [None]
  - SENSORY DISTURBANCE [None]
  - MUSCULAR WEAKNESS [None]
  - PAIN IN JAW [None]
